FAERS Safety Report 8081656-1 (Version None)
Quarter: 2012Q1

REPORT INFORMATION
  Report Type: 
  Country: None (occurrence: None)
  Receive Date: 20120130
  Receipt Date: 20120125
  Transmission Date: 20120608
  Serious: Yes (Other)
  Sender: FDA-Public Use
  Company Number: US-ABBOTT-11P-163-0868107-00

PATIENT
  Sex: Male
  Weight: 106.24 kg

DRUGS (5)
  1. FOLIC ACID [Concomitant]
     Indication: PRODUCT USED FOR UNKNOWN INDICATION
  2. HUMIRA [Suspect]
     Dates: start: 20110801, end: 20111007
  3. LEXAPRO [Concomitant]
     Indication: ANXIETY
     Dates: start: 20040101
  4. HUMIRA [Suspect]
     Indication: PSORIASIS
  5. LISINOPRIL [Concomitant]
     Indication: HYPERTENSION
     Dates: start: 20050101

REACTIONS (3)
  - FATTY LIVER ALCOHOLIC [None]
  - HEPATIC ENZYME INCREASED [None]
  - BACK PAIN [None]
